FAERS Safety Report 21293731 (Version 1)
Quarter: 2022Q3

REPORT INFORMATION
  Report Type: Spontaneous
  Country: LT (occurrence: LT)
  Receive Date: 20220905
  Receipt Date: 20220905
  Transmission Date: 20221027
  Serious: Yes (Hospitalization, Other)
  Sender: FDA-Public Use
  Company Number: None

PATIENT
  Age: 52 Year
  Sex: Male
  Weight: 81 kg

DRUGS (6)
  1. EXFORGE [Suspect]
     Active Substance: AMLODIPINE BESYLATE\VALSARTAN
     Indication: Hypertension
     Dosage: UNK UNK, QD
     Route: 048
  2. ATORVASTATIN [Concomitant]
     Active Substance: ATORVASTATIN
     Indication: Blood cholesterol increased
     Dosage: 20 MG, QD
     Route: 048
     Dates: start: 2018
  3. DENOSUMAB [Concomitant]
     Active Substance: DENOSUMAB
     Indication: Product used for unknown indication
     Dosage: UNK, ONCE IN 6 MONTHS ( 60 MG/ML)
     Route: 065
     Dates: start: 202006
  4. VITAMIN D [Concomitant]
     Active Substance: VITAMIN D NOS
     Indication: Product used for unknown indication
     Dosage: 4000 IU, QD
     Route: 065
     Dates: start: 202006
  5. SECUKINUMAB [Concomitant]
     Active Substance: SECUKINUMAB
     Indication: Rheumatoid arthritis
     Dosage: 150 MG, QMO (ONCE PER MONTH)
     Route: 065
     Dates: start: 202105, end: 202111
  6. CALCIUM [Concomitant]
     Active Substance: CALCIUM
     Indication: Product used for unknown indication
     Dosage: 1000 MG, QD
     Route: 065
     Dates: start: 202006

REACTIONS (13)
  - Pelvic fracture [Unknown]
  - Osteoporosis [Not Recovered/Not Resolved]
  - Rib fracture [Unknown]
  - Movement disorder [Not Recovered/Not Resolved]
  - Gait disturbance [Recovering/Resolving]
  - Dysuria [Recovered/Resolved]
  - Dyspnoea [Recovering/Resolving]
  - Peripheral swelling [Recovered/Resolved]
  - Chest pain [Not Recovered/Not Resolved]
  - Pain [Not Recovered/Not Resolved]
  - Pain [Not Recovered/Not Resolved]
  - Fatigue [Recovering/Resolving]
  - Muscle spasms [Recovered/Resolved]

NARRATIVE: CASE EVENT DATE: 20170101
